FAERS Safety Report 9470740 (Version 1)
Quarter: 2013Q3

REPORT INFORMATION
  Report Type: Spontaneous
  Country: US (occurrence: US)
  Receive Date: 20130822
  Receipt Date: 20130822
  Transmission Date: 20140515
  Serious: Yes (Other)
  Sender: FDA-Public Use
  Company Number: US-SANOFI-AVENTIS-2013SA051617

PATIENT
  Age: 50 Year
  Sex: Male

DRUGS (6)
  1. ZALTRAP [Suspect]
     Dosage: BETWEEN 3RD TO 4TH CYCLE
     Route: 041
  2. ZALTRAP [Suspect]
     Route: 041
  3. ZALTRAP [Suspect]
     Route: 041
  4. IRINOTECAN [Suspect]
  5. FOLINIC ACID [Suspect]
  6. 5-FU [Suspect]

REACTIONS (2)
  - Drug eruption [Recovered/Resolved]
  - Skin exfoliation [Recovered/Resolved]
